FAERS Safety Report 17924072 (Version 1)
Quarter: 2020Q2

REPORT INFORMATION
  Report Type: Spontaneous
  Country: US (occurrence: US)
  Receive Date: 20200622
  Receipt Date: 20200622
  Transmission Date: 20200714
  Serious: Yes (Other)
  Sender: FDA-Public Use
  Company Number: US-JNJFOC-20200622444

PATIENT
  Age: 65 Year
  Sex: Male

DRUGS (1)
  1. XARELTO [Suspect]
     Active Substance: RIVAROXABAN
     Indication: PRODUCT USED FOR UNKNOWN INDICATION
     Dosage: UNK
     Route: 048
     Dates: start: 2012

REACTIONS (6)
  - Drug ineffective [Unknown]
  - Syncope [Unknown]
  - Product use in unapproved indication [Unknown]
  - Amnesia [Unknown]
  - Amaurosis fugax [Unknown]
  - Off label use [Unknown]

NARRATIVE: CASE EVENT DATE: 2012
